FAERS Safety Report 9638578 (Version 1)
Quarter: 2013Q4

REPORT INFORMATION
  Report Type: Report from Study
  Country: US (occurrence: US)
  Receive Date: 20131022
  Receipt Date: 20131022
  Transmission Date: 20140711
  Serious: Yes (Death)
  Sender: FDA-Public Use
  Company Number: US-B.I. PHARMACEUTICALS,INC./RIDGEFIELD-2013-BI-33338BI

PATIENT
  Sex: Male

DRUGS (1)
  1. GILOTRIF [Suspect]
     Indication: NEOPLASM MALIGNANT
     Dosage: 40 MG
     Route: 048

REACTIONS (1)
  - Death [Fatal]
